FAERS Safety Report 7478319-X (Version None)
Quarter: 2011Q2

REPORT INFORMATION
  Report Type: 
  Country: None (occurrence: None)
  Receive Date: 20110513
  Receipt Date: 20110504
  Transmission Date: 20111010
  Serious: Yes (Other)
  Sender: FDA-Public Use
  Company Number: PHHY2010DE76833

PATIENT
  Sex: Female
  Weight: 79 kg

DRUGS (1)
  1. GLEEVEC [Suspect]
     Indication: CHRONIC MYELOID LEUKAEMIA
     Dosage: 400 MG, DAILY
     Route: 048
     Dates: start: 20080101, end: 20100601

REACTIONS (11)
  - GENE MUTATION IDENTIFICATION TEST POSITIVE [None]
  - PAIN IN EXTREMITY [None]
  - BACK PAIN [None]
  - COUGH [None]
  - CHOLELITHIASIS [None]
  - MYOCARDIAL STRAIN [None]
  - MITRAL VALVE DISEASE MIXED [None]
  - OEDEMA PERIPHERAL [None]
  - PULMONARY FIBROSIS [None]
  - DYSPNOEA EXERTIONAL [None]
  - AORTIC VALVE SCLEROSIS [None]
